FAERS Safety Report 15257719 (Version 2)
Quarter: 2018Q3

REPORT INFORMATION
  Report Type: Spontaneous
  Country: GR (occurrence: GR)
  Receive Date: 20180808
  Receipt Date: 20180925
  Transmission Date: 20181010
  Serious: Yes (Hospitalization)
  Sender: FDA-Public Use
  Company Number: PHHY2018GR066412

PATIENT
  Age: 14 Year
  Sex: Male

DRUGS (3)
  1. LEVETIRACETAM. [Suspect]
     Active Substance: LEVETIRACETAM
     Indication: EPILEPSY
     Route: 065
  2. ACETAZOLAMIDE. [Concomitant]
     Active Substance: ACETAZOLAMIDE
     Indication: PRODUCT USED FOR UNKNOWN INDICATION
     Dosage: UNK
     Route: 065
  3. WARFARIN [Concomitant]
     Active Substance: WARFARIN
     Indication: EPILEPSY
     Dosage: UNK
     Route: 065

REACTIONS (18)
  - Headache [Unknown]
  - Irritability [Unknown]
  - Sensory loss [Unknown]
  - Nystagmus [Unknown]
  - Musculoskeletal stiffness [Unknown]
  - Photophobia [Unknown]
  - Dyskinesia [Unknown]
  - Vomiting [Unknown]
  - Confusional state [Unknown]
  - Pyrexia [Unknown]
  - Transient ischaemic attack [Unknown]
  - Hallucination, visual [Unknown]
  - Gait disturbance [Unknown]
  - Dizziness [Unknown]
  - Gaze palsy [Unknown]
  - Hyporeflexia [Unknown]
  - Coordination abnormal [Unknown]
  - Facial paralysis [Unknown]
